FAERS Safety Report 13384398 (Version 1)
Quarter: 2017Q1

REPORT INFORMATION
  Report Type: Spontaneous
  Country: US (occurrence: US)
  Receive Date: 20170329
  Receipt Date: 20170329
  Transmission Date: 20170429
  Serious: Yes (Other)
  Sender: FDA-Public Use
  Company Number: None

PATIENT
  Age: 55 Year
  Sex: Female

DRUGS (1)
  1. IBRANCE [Suspect]
     Active Substance: PALBOCICLIB
     Indication: BREAST CANCER
     Dosage: 125MG CAPSULE ONCE DAILY FOR 21 DAYS ON THEN 7 DAYS OFF BY MOUTH
     Route: 048
     Dates: start: 20161117

REACTIONS (9)
  - Pain [None]
  - Stomatitis [None]
  - Fatigue [None]
  - Mass [None]
  - Paraesthesia [None]
  - Neuropathy peripheral [None]
  - Swelling face [None]
  - Headache [None]
  - Nausea [None]

NARRATIVE: CASE EVENT DATE: 20170310
